FAERS Safety Report 6571092-9 (Version None)
Quarter: 2010Q1

REPORT INFORMATION
  Report Type: 
  Country: None (occurrence: None)
  Receive Date: 20100204
  Receipt Date: 20100128
  Transmission Date: 20100710
  Serious: Yes (Hospitalization)
  Sender: FDA-Public Use
  Company Number: US-GILEAD-2009-0026215

PATIENT
  Sex: Female

DRUGS (19)
  1. LETAIRIS [Suspect]
     Indication: PULMONARY ARTERIAL HYPERTENSION
     Route: 048
     Dates: start: 20090612
  2. AMIODARONE HCL [Concomitant]
  3. LIPITOR [Concomitant]
  4. ASPIRIN [Concomitant]
  5. LASIX [Concomitant]
  6. MUCINEX [Concomitant]
  7. ACCOLATE [Concomitant]
  8. OXYGEN [Concomitant]
  9. PROAIR HFA [Concomitant]
  10. PROVENTIL [Concomitant]
  11. SINGULAIR [Concomitant]
  12. SPIRIVA [Concomitant]
  13. OMEPRAZOLE [Concomitant]
  14. POTASSIUM [Concomitant]
  15. STOOL SOFTENER [Concomitant]
  16. HYDROXYZINE [Concomitant]
  17. AMOXICILLIN [Concomitant]
  18. OYSTER CAL [Concomitant]
  19. CENTRUM SILVER [Concomitant]

REACTIONS (1)
  - PULMONARY HAEMORRHAGE [None]
